FAERS Safety Report 15651284 (Version 1)
Quarter: 2018Q4

REPORT INFORMATION
  Report Type: Spontaneous
  Country: BR (occurrence: BR)
  Receive Date: 20181123
  Receipt Date: 20181123
  Transmission Date: 20190205
  Serious: Yes (Hospitalization, Other)
  Sender: FDA-Public Use
  Company Number: BR-GLAXOSMITHKLINE-BR2018GSK212326

PATIENT
  Age: 73 Year
  Sex: Female
  Weight: 56 kg

DRUGS (11)
  1. ANORO ELLIPTA [Suspect]
     Active Substance: UMECLIDINIUM BROMIDE\VILANTEROL TRIFENATATE
     Indication: ASTHMA
     Dosage: 1 PUFF(S), BID
     Route: 055
     Dates: start: 201603
  2. ANORO ELLIPTA [Suspect]
     Active Substance: UMECLIDINIUM BROMIDE\VILANTEROL TRIFENATATE
     Indication: BRONCHITIS
  3. ENALAPRIL MALEATE. [Concomitant]
     Active Substance: ENALAPRIL MALEATE
     Indication: PRODUCT USED FOR UNKNOWN INDICATION
     Dosage: UNK
     Route: 048
     Dates: start: 2008
  4. SIMVASTATIN. [Concomitant]
     Active Substance: SIMVASTATIN
     Indication: BLOOD CHOLESTEROL INCREASED
     Dosage: 2 DF, UNK (TABLETS PER DAY)
     Route: 048
     Dates: start: 2015
  5. ACETYLSALICYLIC ACID [Concomitant]
     Active Substance: ASPIRIN
     Indication: PRODUCT USED FOR UNKNOWN INDICATION
     Dosage: 2 DF, UNK (TABLETS PER DAY)
     Route: 048
     Dates: start: 2014
  6. GLIFAGE (METFORMIN HYDROCHLORIDE) [Concomitant]
     Indication: PRODUCT USED FOR UNKNOWN INDICATION
     Dosage: 2 DF, UNK (TABLETS PER DAY)
     Route: 048
  7. LABIRIN [Concomitant]
     Active Substance: BETAHISTINE
     Indication: LABYRINTHITIS
     Dosage: 2 DF, UNK (TABLETS PER DAY)_
     Route: 048
     Dates: start: 201809
  8. ALDARA (IMIQUIMOD) [Concomitant]
     Indication: PRODUCT USED FOR UNKNOWN INDICATION
     Dosage: UNK
     Dates: start: 20180328
  9. OMEPRAZOLE. [Concomitant]
     Active Substance: OMEPRAZOLE
     Indication: GASTROOESOPHAGEAL REFLUX DISEASE
     Dosage: 2 DF, UNK (TABLETS PER DAY)
     Route: 048
     Dates: start: 2016
  10. KETOPROFEN. [Concomitant]
     Active Substance: KETOPROFEN
     Indication: PRODUCT USED FOR UNKNOWN INDICATION
     Dosage: 1 DF, UNK (TABLESPOON)
     Route: 048
     Dates: start: 201810
  11. CLOPAM (CLONAZEPAM) [Concomitant]
     Indication: INSOMNIA
     Dosage: 0.5 DF, BID (TABLET)
     Route: 048
     Dates: start: 2008

REACTIONS (3)
  - Product use issue [Not Recovered/Not Resolved]
  - Lung disorder [Unknown]
  - Overdose [Unknown]

NARRATIVE: CASE EVENT DATE: 201603
